FAERS Safety Report 11352360 (Version 1)
Quarter: 2015Q3

REPORT INFORMATION
  Report Type: Spontaneous
  Country: US (occurrence: US)
  Receive Date: 20150807
  Receipt Date: 20150807
  Transmission Date: 20151125
  Serious: No
  Sender: FDA-Public Use
  Company Number: US-JNJFOC-20150406904

PATIENT
  Age: 72 Year
  Sex: Female
  Weight: 61.24 kg

DRUGS (11)
  1. MENS ROGAINE EXTRA STRENGTH [Suspect]
     Active Substance: MINOXIDIL
     Indication: ALOPECIA
     Route: 061
  2. OMEGA-3 ACIDS [Concomitant]
     Active Substance: OMEGA-3 FATTY ACIDS
     Indication: PRODUCT USED FOR UNKNOWN INDICATION
  3. MENS ROGAINE EXTRA STRENGTH [Suspect]
     Active Substance: MINOXIDIL
     Route: 061
  4. PROZAC [Concomitant]
     Active Substance: FLUOXETINE HYDROCHLORIDE
     Indication: ANTIDEPRESSANT THERAPY
     Route: 065
  5. ZOCOR [Concomitant]
     Active Substance: SIMVASTATIN
     Indication: BLOOD CHOLESTEROL
     Route: 065
  6. BABY ASPIRIN [Concomitant]
     Active Substance: ASPIRIN
     Indication: COAGULOPATHY
     Route: 065
  7. BIOTIN [Concomitant]
     Active Substance: BIOTIN
     Indication: NAIL DISORDER
     Dosage: 2500, 1 TABLET
     Route: 065
  8. CYANOCOBALAMIN. [Concomitant]
     Active Substance: CYANOCOBALAMIN
     Indication: GENERAL PHYSICAL CONDITION
     Route: 065
  9. VITAMIN D [Concomitant]
     Active Substance: CHOLECALCIFEROL
     Indication: GENERAL PHYSICAL CONDITION
     Route: 065
  10. BIOTIN [Concomitant]
     Active Substance: BIOTIN
     Indication: HAIR DISORDER
     Dosage: 2500, 1 TABLET
     Route: 065
  11. POTASSIUM CITRATE. [Concomitant]
     Active Substance: POTASSIUM CITRATE
     Indication: RENAL LITHIASIS PROPHYLAXIS

REACTIONS (4)
  - Wrong patient received medication [Unknown]
  - Hair growth abnormal [Not Recovered/Not Resolved]
  - Skin irritation [Not Recovered/Not Resolved]
  - Pruritus [Not Recovered/Not Resolved]
